FAERS Safety Report 8055019-9 (Version None)
Quarter: 2012Q1

REPORT INFORMATION
  Report Type: 
  Country: None (occurrence: None)
  Receive Date: 20120119
  Receipt Date: 20120118
  Transmission Date: 20120608
  Serious: Yes (Hospitalization)
  Sender: FDA-Public Use
  Company Number: IT-PFIZER INC-2011180775

PATIENT
  Age: 51 Year
  Sex: Female

DRUGS (3)
  1. DIAMOX SRC [Suspect]
     Dosage: 15 CAPSULES (250 MG)
     Route: 048
     Dates: start: 20110719, end: 20110719
  2. TOPAMAX [Suspect]
     Indication: EPILEPSY
     Dosage: 50 CAPSULES (50 MG)
     Route: 048
     Dates: start: 20110719, end: 20110719
  3. EFFEXOR XR [Suspect]
     Indication: DEPRESSION
     Dosage: 15 CAPSULES (75 MG)
     Route: 048
     Dates: start: 20110719, end: 20110719

REACTIONS (3)
  - SOPOR [None]
  - OVERDOSE [None]
  - INTENTIONAL SELF-INJURY [None]
